FAERS Safety Report 20129621 (Version 2)
Quarter: 2021Q4

REPORT INFORMATION
  Report Type: Spontaneous
  Country: FR (occurrence: None)
  Receive Date: 20211130
  Receipt Date: 20211215
  Transmission Date: 20220303
  Serious: Yes (Other)
  Sender: FDA-Public Use
  Company Number: 2021A842695

PATIENT
  Age: 20203 Day
  Sex: Female

DRUGS (4)
  1. FASLODEX [Suspect]
     Active Substance: FULVESTRANT
     Dosage: 1 INJECTION IN EACH BUTTOCK MUSCLE EVERY 15 DAYS AND THEN 1 INJECTION MONTHLY
     Route: 030
     Dates: start: 202009
  2. FASLODEX [Suspect]
     Active Substance: FULVESTRANT
     Dosage: 1 INJECTION IN EACH BUTTOCK MUSCLE EVERY 15 DAYS AND THEN 1 INJECTION MONTHLY
     Route: 030
     Dates: start: 20211108
  3. ABEMACICLIB [Concomitant]
     Active Substance: ABEMACICLIB
     Dosage: 150 MG AT THE DOSAGE OF 1 TABLET IN THE MORNING AND IN THE EVENING CONTINUOUSLY
     Dates: start: 202009
  4. XGEVA [Concomitant]
     Active Substance: DENOSUMAB
     Dosage: 120 MG MONTHLY.
     Dates: start: 20211108

REACTIONS (5)
  - Injection site pain [Recovering/Resolving]
  - Crying [Recovering/Resolving]
  - Injection site swelling [Unknown]
  - Intentional product misuse [Unknown]
  - Off label use [Unknown]

NARRATIVE: CASE EVENT DATE: 20200901
